FAERS Safety Report 8770947 (Version 1)
Quarter: 2012Q4

REPORT INFORMATION
  Report Type: 
  Country: US (occurrence: US)
  Receive Date: 20120906
  Receipt Date: 20120906
  Transmission Date: 20130627
  Serious: Yes (Hospitalization)
  Sender: FDA-Public Use
  Company Number: US-BAYER-2012-091135

PATIENT
  Age: 39 Year
  Sex: Female
  Weight: 66 kg

DRUGS (29)
  1. YAZ [Suspect]
  2. YASMIN [Suspect]
  3. IBUPROFEN [Concomitant]
     Dosage: 600 mg, UNK
     Route: 048
     Dates: start: 20111213
  4. FLUOXETINE [Concomitant]
     Dosage: 20 mg, UNK
     Route: 048
     Dates: start: 20111226, end: 20120128
  5. TRAMADOL [Concomitant]
     Dosage: 50 mg, UNK
     Route: 048
     Dates: start: 20120203
  6. ANCEF [Concomitant]
     Dosage: 1 mg, UNK
     Route: 042
     Dates: start: 20120227
  7. COLACE [Concomitant]
     Dosage: 100 mg, UNK
     Route: 048
     Dates: start: 20120227
  8. TORADOL [Concomitant]
     Dosage: 30 mg, UNK
     Route: 042
     Dates: start: 20120227
  9. MORPHINE [Concomitant]
     Dosage: 2.4 mg, UNK
     Route: 042
     Dates: start: 20120228
  10. OMEPRAZOLE [Concomitant]
     Dosage: 20 mg, UNK
     Route: 048
     Dates: start: 20120229
  11. OMEPRAZOLE [Concomitant]
     Dosage: 20 mg, UNK
     Dates: start: 20120314
  12. ASPIRIN [Concomitant]
     Dosage: 325 mg, UNK
     Route: 048
     Dates: start: 20120229
  13. OXYCONTIN [Concomitant]
     Dosage: 20 mg, UNK
     Route: 048
     Dates: start: 20120301
  14. OXYCONTIN [Concomitant]
     Dosage: 20 mg, UNK
     Dates: start: 20120305, end: 20120314
  15. ZOLPIDEM [Concomitant]
     Dosage: 12.5 mg, UNK
     Route: 048
     Dates: start: 20120131, end: 20120303
  16. VANCOMYCIN [Concomitant]
     Dosage: 1210 mg, UNK
     Route: 042
     Dates: start: 20120306
  17. CALCIUM CARBONATE W/VITAMIN D NOS [Concomitant]
     Dosage: 600-400mg
     Route: 048
     Dates: start: 20120308
  18. PROZAC [Concomitant]
     Dosage: 20 mg, UNK
     Route: 048
     Dates: start: 20120226, end: 20120309
  19. ZANTAC [Concomitant]
     Dosage: 150 mg, UNK
     Route: 048
     Dates: start: 20120226, end: 20120309
  20. HEPARIN [Concomitant]
     Dosage: 5000 u, UNK
     Route: 058
     Dates: start: 20120305, end: 20120309
  21. OXYCODONE/APAP [Concomitant]
     Dosage: 5-325 mg
     Route: 048
     Dates: start: 20120206, end: 20120309
  22. ONDANSETRON [Concomitant]
     Dosage: 4 mg, UNK
     Route: 048
     Dates: start: 20120310
  23. ALPRAZOLAM [Concomitant]
     Dosage: 0.25 mg, UNK
     Route: 048
     Dates: start: 20120130, end: 20120312
  24. PERCOCET [Concomitant]
     Dosage: 5/325 mg
     Route: 048
     Dates: start: 20120213, end: 20120314
  25. XARELTO [Concomitant]
     Dosage: 10 mg, UNK
     Route: 048
     Dates: start: 20120314
  26. AMBIEN [Concomitant]
     Dosage: 10 mg, UNK
     Route: 048
     Dates: start: 20120226, end: 20120314
  27. XANAX [Concomitant]
     Dosage: 0.25 mg, UNK
     Route: 048
     Dates: start: 20120226, end: 20120314
  28. ZOFRAN [Concomitant]
     Dosage: UNK
     Route: 048
     Dates: start: 20120314
  29. TYGACIL [Concomitant]
     Dosage: 50 mg, UNK
     Route: 042
     Dates: start: 20120307, end: 20120314

REACTIONS (1)
  - Deep vein thrombosis [None]
